FAERS Safety Report 8250943-6 (Version None)
Quarter: 2012Q2

REPORT INFORMATION
  Report Type: 
  Country: None (occurrence: None)
  Receive Date: 20120402
  Receipt Date: 20120322
  Transmission Date: 20120825
  Serious: Yes (Death)
  Sender: FDA-Public Use
  Company Number: US-TEVA-329429USA

PATIENT
  Sex: Male

DRUGS (4)
  1. OXYCODONE HCL [Concomitant]
  2. OXYCODONE HCL [Concomitant]
  3. ACTIQ [Suspect]
     Indication: BREAKTHROUGH PAIN
     Dosage: 1200 MICROGRAM;
     Route: 002
     Dates: start: 20110101, end: 20120318
  4. CAPECITABINE [Concomitant]

REACTIONS (1)
  - HEPATIC FAILURE [None]
